FAERS Safety Report 4321272-8 (Version None)
Quarter: 2004Q1

REPORT INFORMATION
  Report Type: 
  Country: None (occurrence: None)
  Receive Date: 20040322
  Receipt Date: 20030106
  Transmission Date: 20041129
  Serious: No
  Sender: FDA-Public Use
  Company Number: US-BRISTOL-MYERS SQUIBB COMPANY-12196804

PATIENT
  Age: 77 Year
  Sex: Female

DRUGS (5)
  1. MONISTAT [Suspect]
     Indication: VAGINAL MYCOSIS
     Route: 067
     Dates: start: 20030104, end: 20030104
  2. PREMARIN [Concomitant]
  3. THYROID TAB [Concomitant]
  4. PLAVIX [Concomitant]
  5. LOVASTATIN [Concomitant]

REACTIONS (1)
  - OEDEMA GENITAL [None]
